FAERS Safety Report 10490372 (Version 2)
Quarter: 2014Q4

REPORT INFORMATION
  Report Type: Spontaneous
  Country: US (occurrence: US)
  Receive Date: 20141002
  Receipt Date: 20141106
  Transmission Date: 20150528
  Serious: Yes (Other)
  Sender: FDA-Public Use
  Company Number: US-ELI_LILLY_AND_COMPANY-US201409008298

PATIENT
  Age: 78 Year
  Sex: Male

DRUGS (8)
  1. HUMALOG [Suspect]
     Active Substance: INSULIN LISPRO
     Dosage: UNK UNK, PRN
     Route: 065
     Dates: start: 2013
  2. CORTISONE [Concomitant]
     Active Substance: CORTISONE\HYDROCORTISONE
     Indication: ARTHRALGIA
  3. VICODIN [Concomitant]
     Active Substance: ACETAMINOPHEN\HYDROCODONE BITARTRATE
     Dosage: UNK, PRN
  4. LEVEMIR [Concomitant]
     Active Substance: INSULIN DETEMIR
  5. NOVOLOG [Concomitant]
     Active Substance: INSULIN ASPART
  6. TYLENOL WITH CODEINE [Concomitant]
     Active Substance: ACETAMINOPHEN\CODEINE PHOSPHATE
     Dosage: 2 DF, WEEKLY (1/W)
  7. HUMALOG [Suspect]
     Active Substance: INSULIN LISPRO
     Indication: TYPE 2 DIABETES MELLITUS
     Dosage: UNK UNK, PRN
     Route: 065
     Dates: start: 2013
  8. HUMALOG [Suspect]
     Active Substance: INSULIN LISPRO
     Indication: TYPE 2 DIABETES MELLITUS
     Dosage: UNK UNK, PRN
     Route: 065
     Dates: start: 2013

REACTIONS (13)
  - Weight decreased [Unknown]
  - Neuralgia [Unknown]
  - Renal disorder [Unknown]
  - Malaise [Unknown]
  - Blood glucose increased [Recovering/Resolving]
  - Drug ineffective [Unknown]
  - Dizziness [Unknown]
  - Feeding disorder [Recovered/Resolved]
  - Arthralgia [Unknown]
  - Blood glucose increased [Unknown]
  - Headache [Unknown]
  - Blood glucose increased [Recovered/Resolved]
  - Blood glucose increased [Unknown]

NARRATIVE: CASE EVENT DATE: 201301
